FAERS Safety Report 6028163-5 (Version None)
Quarter: 2008Q4

REPORT INFORMATION
  Report Type: 
  Country: None (occurrence: None)
  Receive Date: 20081231
  Receipt Date: 20081231
  Transmission Date: 20090506
  Serious: No
  Sender: FDA-Public Use
  Company Number: None

PATIENT
  Age: 44 Year
  Sex: Female
  Weight: 68.0396 kg

DRUGS (1)
  1. ZICAM NO-DRIPLIQUID ZINCUM GLUONICUM 2X MATRIXX INIATIVES, INC [Suspect]
     Indication: NASOPHARYNGITIS
     Dosage: 1 SQUIRT IN EACH NOSTRIL 1 USAGE NASAL
     Route: 045
     Dates: start: 20081224

REACTIONS (5)
  - AGEUSIA [None]
  - ANOSMIA [None]
  - LYMPHADENOPATHY [None]
  - NASAL DISCOMFORT [None]
  - SENSORY LOSS [None]
